FAERS Safety Report 13185202 (Version 3)
Quarter: 2017Q1

REPORT INFORMATION
  Report Type: Spontaneous
  Country: CA (occurrence: CA)
  Receive Date: 20170203
  Receipt Date: 20170221
  Transmission Date: 20170428
  Serious: Yes (Other)
  Sender: FDA-Public Use
  Company Number: CA-GILEAD-2017-0256209

PATIENT
  Sex: Female

DRUGS (1)
  1. HARVONI [Suspect]
     Active Substance: LEDIPASVIR\SOFOSBUVIR
     Indication: HEPATITIS C
     Dosage: UNK
     Route: 048
     Dates: start: 201510, end: 201511

REACTIONS (3)
  - Metastases to central nervous system [Unknown]
  - Breast cancer metastatic [Unknown]
  - Product counterfeit [Recovered/Resolved]

NARRATIVE: CASE EVENT DATE: 201510
